FAERS Safety Report 9511850 (Version 1)
Quarter: 2013Q1

REPORT INFORMATION
  Report Type: Spontaneous
  Country: US (occurrence: None)
  Receive Date: 20130305
  Receipt Date: 20130305
  Transmission Date: 20140127
  Serious: Yes (Hospitalization)
  Sender: FDA-Public Use
  Company Number: 163-21880-12103564

PATIENT
  Age: 82 Year
  Sex: Female
  Weight: 88 kg

DRUGS (7)
  1. REVLIMID [Suspect]
     Indication: PLASMA CELL MYELOMA
     Dosage: 15 MG, 1 IN 1 D, PO
     Route: 048
     Dates: start: 20120926
  2. ANTI-DIARRHEAL (LOPERAMIDE HYDROCHLORIDE) (CAPSULES)? [Concomitant]
  3. CARVEDILOL (CARVEDILOL) (TABLETS)? [Concomitant]
  4. DEXAMETHASONE (DEXAMETHASONE) (TABLETS)? [Concomitant]
  5. FISH OIL (FISH OIL) (CAPSULES)? [Concomitant]
  6. PAIN FREE (PAIN FREE) (TABLETS)? [Concomitant]
  7. RESTORA (LACTOBACILLUS ACIDOPHILUS) (CAPSULES) [Concomitant]

REACTIONS (1)
  - Chest pain [None]
